FAERS Safety Report 5564905-0 (Version None)
Quarter: 2007Q4

REPORT INFORMATION
  Report Type: 
  Country: None (occurrence: None)
  Receive Date: 20071218
  Receipt Date: 20071207
  Transmission Date: 20080405
  Serious: Yes (Other)
  Sender: FDA-Public Use
  Company Number: AU-JNJFOC-20071007109

PATIENT
  Age: 51 Year
  Sex: Female

DRUGS (3)
  1. TOPAMAX [Suspect]
     Indication: CONVULSION
  2. TOPAMAX [Suspect]
     Indication: MIGRAINE
  3. DILANTIN [Concomitant]

REACTIONS (10)
  - ABNORMAL SENSATION IN EYE [None]
  - BODY TEMPERATURE INCREASED [None]
  - CONFUSIONAL STATE [None]
  - DYSPNOEA [None]
  - EXOPHTHALMOS [None]
  - EYE PAIN [None]
  - FATIGUE [None]
  - HEADACHE [None]
  - HYPOAESTHESIA [None]
  - MIGRAINE [None]
